FAERS Safety Report 5525938-3 (Version None)
Quarter: 2007Q4

REPORT INFORMATION
  Report Type: 
  Country: None (occurrence: None)
  Receive Date: 20071126
  Receipt Date: 20071114
  Transmission Date: 20080405
  Serious: Yes (Other)
  Sender: FDA-Public Use
  Company Number: US-PFIZER INC-2007097145

PATIENT
  Sex: Female
  Weight: 47.7 kg

DRUGS (4)
  1. CHANTIX [Suspect]
     Indication: SMOKING CESSATION THERAPY
  2. PHENOBARBITAL TAB [Concomitant]
  3. TEGRETOL [Concomitant]
  4. ZYRTEC [Concomitant]

REACTIONS (6)
  - DIZZINESS [None]
  - DYSSTASIA [None]
  - EARLY MORNING AWAKENING [None]
  - FATIGUE [None]
  - GAIT DISTURBANCE [None]
  - SOMNOLENCE [None]
